FAERS Safety Report 8603004-8 (Version None)
Quarter: 2012Q3

REPORT INFORMATION
  Report Type: 
  Country: None (occurrence: None)
  Receive Date: 20120817
  Receipt Date: 20120510
  Transmission Date: 20120928
  Serious: No
  Sender: FDA-Public Use
  Company Number: US-GLAXOSMITHKLINE-A0977767A

PATIENT
  Age: 59 Year
  Sex: Male

DRUGS (10)
  1. ZANAFLEX [Concomitant]
  2. VOTRIENT [Suspect]
     Indication: RENAL CANCER
     Dosage: 200MG TWICE PER DAY
     Route: 048
     Dates: start: 20120131
  3. OXYCODONE HCL [Concomitant]
  4. AMBIEN [Concomitant]
  5. UROXATRAL [Concomitant]
  6. MIRALAX [Concomitant]
  7. OXYCONTIN [Concomitant]
  8. VALIUM [Concomitant]
  9. MULTI-VITAMIN [Concomitant]
  10. SENNA [Concomitant]

REACTIONS (3)
  - DIARRHOEA [None]
  - FLATULENCE [None]
  - RASH [None]
